FAERS Safety Report 15488893 (Version 2)
Quarter: 2018Q4

REPORT INFORMATION
  Report Type: Spontaneous
  Country: US (occurrence: US)
  Receive Date: 20181011
  Receipt Date: 20181016
  Transmission Date: 20190205
  Serious: No
  Sender: FDA-Public Use
  Company Number: US-AMGEN-USASP2018139543

PATIENT
  Age: 78 Year
  Sex: Male

DRUGS (1)
  1. PROLIA [Suspect]
     Active Substance: DENOSUMAB
     Indication: FRACTURED SACRUM
     Dosage: 60 MG, UNK
     Route: 065
     Dates: start: 201804

REACTIONS (5)
  - Rash pruritic [Unknown]
  - Rash papular [Unknown]
  - Paraesthesia [Not Recovered/Not Resolved]
  - Off label use [Unknown]
  - Rash vesicular [Not Recovered/Not Resolved]

NARRATIVE: CASE EVENT DATE: 2018
